FAERS Safety Report 7270675 (Version 3)
Quarter: 2013Q1

REPORT INFORMATION
  Report Type: Spontaneous
  Country: GB (occurrence: None)
  Receive Date: 20100122
  Receipt Date: 20121015
  Transmission Date: 20140127
  Serious: Yes (Other)
  Sender: FDA-Public Use
  Company Number: AUR-APL-2010-00057

PATIENT
  Age: 43 Year
  Sex: Male
  Weight: 68 kg

DRUGS (1)
  1. TERBINAFINE [Suspect]
     Indication: ONYCHOMYCOSIS
     Dosage: 250MG - DAILY - ORAL
     Route: 048
     Dates: start: 20080521, end: 20080716

REACTIONS (4)
  - Paraesthesia [None]
  - Dizziness [None]
  - Nausea [None]
  - Asthenia [None]
